FAERS Safety Report 8612053 (Version 2)
Quarter: 2012Q4

REPORT INFORMATION
  Report Type: 
  Country: FR (occurrence: FR)
  Receive Date: 20120613
  Receipt Date: 20120928
  Transmission Date: 20130627
  Serious: Yes (Hospitalization)
  Sender: FDA-Public Use
  Company Number: FR-SANOFI-AVENTIS-2012SA039824

PATIENT
  Age: 64 Year
  Sex: Male

DRUGS (9)
  1. VISIPAQUE [Suspect]
     Indication: ANGIOGRAM CORONARY
     Route: 065
     Dates: start: 20120524, end: 20120524
  2. KARDEGIC [Concomitant]
     Route: 048
  3. LERCAN [Concomitant]
  4. TAHOR [Concomitant]
  5. VALSARTAN [Concomitant]
  6. METFORMIN [Concomitant]
  7. VALIUM [Concomitant]
  8. MOPRAL [Concomitant]
  9. PLAVIX [Suspect]
     Indication: DRUG USE FOR UNKNOWN INDICATION
     Route: 048
     Dates: start: 20120524, end: 20120524

REACTIONS (4)
  - Vasoplegia syndrome [Recovered/Resolved]
  - Urticaria [Recovered/Resolved]
  - Feeling hot [Recovered/Resolved]
  - Overdose [Recovered/Resolved]
